FAERS Safety Report 18666143 (Version 1)
Quarter: 2020Q4

REPORT INFORMATION
  Report Type: Spontaneous
  Country: DE (occurrence: DE)
  Receive Date: 20201226
  Receipt Date: 20201226
  Transmission Date: 20210114
  Serious: Yes (Hospitalization, Other)
  Sender: FDA-Public Use
  Company Number: DE-TEVA-2020-DE-1860915

PATIENT
  Age: 83 Year
  Sex: Female

DRUGS (13)
  1. FUROSEMIDE. [Suspect]
     Active Substance: FUROSEMIDE
     Dosage: 40 MG, 1-0.5-0-0
  2. RAMIPRIL. [Suspect]
     Active Substance: RAMIPRIL
     Dosage: 1 DOSAGE FORMS DAILY; 5 MG, 0.5-0-0.5-0
  3. TRIMIPRAMINE [Concomitant]
     Active Substance: TRIMIPRAMINE
     Dosage: 25 MILLIGRAM DAILY;  0-0-0-1
  4. PANTOPRAZOL [Concomitant]
     Active Substance: PANTOPRAZOLE SODIUM
     Dosage: 80 MILLIGRAM DAILY;  1-0-1-0
  5. ALLOPURINOL. [Concomitant]
     Active Substance: ALLOPURINOL
     Dosage: 100 MILLIGRAM DAILY;  1-0-0-0
  6. ASS 100 [Concomitant]
     Active Substance: ASPIRIN
     Dosage: 100 MILLIGRAM DAILY;  0-0-1-0
  7. METOPROLOL. [Suspect]
     Active Substance: METOPROLOL
     Dosage: 1 DOSAGE FORMS DAILY; 95 MG, 0.5-0-0.5-0
  8. CEFPODOXIM [Suspect]
     Active Substance: CEFPODOXIME PROXETIL
     Dosage: DISCONTINUED IN JUNE
  9. SIMVASTATIN. [Concomitant]
     Active Substance: SIMVASTATIN
     Dosage: 20 MILLIGRAM DAILY;  0-0-1-0
  10. EISEN II [Concomitant]
     Active Substance: FERROUS SULFATE
     Dosage: 1 DOSAGE FORMS DAILY; 0-1-0-0
  11. COLECALCIFEROL (VITAMIN D) [Concomitant]
     Dosage: 1000 IU (INTERNATIONAL UNIT) DAILY; 1-0-0-0
  12. ELEBRATO ELLIPTA 92 MIKROGRAMM/55 MIKROGRAMM/22 MIKROGRAMM EINZELDOSIE [Concomitant]
     Dosage: 1 DOSAGE FORMS DAILY; 92 | 55 | 22 UG, 1-0-0-0
     Route: 055
  13. JANUVIA [Concomitant]
     Active Substance: SITAGLIPTIN PHOSPHATE
     Dosage: 50 MILLIGRAM DAILY; 1-0-0-0

REACTIONS (4)
  - Dysuria [Unknown]
  - General physical health deterioration [Unknown]
  - Dizziness [Unknown]
  - Bradycardia [Unknown]
